FAERS Safety Report 22183597 (Version 4)
Quarter: 2023Q2

REPORT INFORMATION
  Report Type: Spontaneous
  Country: US (occurrence: US)
  Receive Date: 20230406
  Receipt Date: 20230517
  Transmission Date: 20230722
  Serious: No
  Sender: FDA-Public Use
  Company Number: US-002147023-NVSC2023US079875

PATIENT
  Sex: Female

DRUGS (1)
  1. COMBIPATCH [Suspect]
     Active Substance: ESTRADIOL\NORETHINDRONE ACETATE
     Indication: Menopause
     Dosage: 0.05/0.25 MG, (STARTED IN 2023)
     Route: 062

REACTIONS (5)
  - Device adhesion issue [Recovered/Resolved]
  - Device breakage [Recovered/Resolved]
  - Product storage error [Not Recovered/Not Resolved]
  - Product administration error [Recovered/Resolved]
  - Device difficult to use [Recovered/Resolved]
